FAERS Safety Report 8829246 (Version 2)
Quarter: 2012Q4

REPORT INFORMATION
  Report Type: Spontaneous
  Country: GB (occurrence: None)
  Receive Date: 20121004
  Receipt Date: 20121011
  Transmission Date: 20130627
  Serious: Yes (Other)
  Sender: FDA-Public Use
  Company Number: GER/UKI/12/0026057

PATIENT
  Age: 89 Year
  Sex: Female

DRUGS (8)
  1. DONEPEZIL [Suspect]
     Indication: ALZHEIMER^S DISEASE
     Route: 048
     Dates: end: 20120712
  2. DONEPEZIL [Suspect]
     Indication: ALZHEIMER^S DISEASE
     Route: 048
     Dates: start: 20120713, end: 20120904
  3. ASPIRIN [Concomitant]
  4. FUROSEMIDE (FUROSEMIDE) [Concomitant]
  5. LOSARTAN (LOSARTAN) [Concomitant]
  6. MOXONIDINE (MOXONIDINE) [Concomitant]
  7. QVAR (BECLOMETASONE DIPROPIONATE) [Concomitant]
  8. RISEDRONATE (RISEDRONIC ACID) [Concomitant]

REACTIONS (5)
  - Delusion [None]
  - Hypomania [None]
  - Insomnia [None]
  - Energy increased [None]
  - Inappropriate affect [None]
